FAERS Safety Report 17653806 (Version 2)
Quarter: 2020Q2

REPORT INFORMATION
  Report Type: Report from Study
  Country: US (occurrence: US)
  Receive Date: 20200409
  Receipt Date: 20200430
  Transmission Date: 20200713
  Serious: No
  Sender: FDA-Public Use
  Company Number: US-B.I. PHARMACEUTICALS,INC./RIDGEFIELD-2020-US-019033

PATIENT
  Age: 71 Year
  Sex: Male

DRUGS (2)
  1. OFEV [Suspect]
     Active Substance: NINTEDANIB
     Indication: INTERSTITIAL LUNG DISEASE
     Dosage: 150 MG  PO BID
     Route: 048
     Dates: start: 20200323, end: 20200416
  2. OFEV [Suspect]
     Active Substance: NINTEDANIB
     Indication: SCLERODERMA
     Dosage: DOSAGE REDUCE
     Route: 048

REACTIONS (3)
  - Abnormal loss of weight [Not Recovered/Not Resolved]
  - Liver function test increased [Not Recovered/Not Resolved]
  - Decreased appetite [Not Recovered/Not Resolved]

NARRATIVE: CASE EVENT DATE: 202003
